FAERS Safety Report 18617990 (Version 1)
Quarter: 2020Q4

REPORT INFORMATION
  Report Type: Report from Study
  Country: CA (occurrence: CA)
  Receive Date: 20201215
  Receipt Date: 20201215
  Transmission Date: 20210114
  Serious: Yes (Hospitalization)
  Sender: FDA-Public Use
  Company Number: CA-BAYER-2020-268465

PATIENT
  Sex: Female

DRUGS (5)
  1. SYMBICORT [Suspect]
     Active Substance: BUDESONIDE\FORMOTEROL FUMARATE DIHYDRATE
  2. CEFUROXIME AXETIL. [Suspect]
     Active Substance: CEFUROXIME AXETIL
  3. NAPROXEN. [Suspect]
     Active Substance: NAPROXEN
     Indication: PRODUCT USED FOR UNKNOWN INDICATION
  4. SALBUTAMOL SULFATE [Suspect]
     Active Substance: ALBUTEROL SULFATE
  5. PENICILLIN G COMP [Suspect]
     Active Substance: PENICILLIN G

REACTIONS (9)
  - Sleep disorder due to a general medical condition [None]
  - Blood count abnormal [None]
  - Fibromyalgia [None]
  - Loss of personal independence in daily activities [None]
  - Oxygen saturation abnormal [None]
  - Asthma [None]
  - Hypersensitivity [None]
  - Adverse drug reaction [None]
  - Dyspnoea [None]
